FAERS Safety Report 20664296 (Version 3)
Quarter: 2022Q2

REPORT INFORMATION
  Report Type: Spontaneous
  Country: AR (occurrence: AR)
  Receive Date: 20220401
  Receipt Date: 20220411
  Transmission Date: 20220721
  Serious: Yes (Other)
  Sender: FDA-Public Use
  Company Number: AR-SA-SAC20220330000757

PATIENT
  Sex: Female

DRUGS (2)
  1. LARONIDASE [Suspect]
     Active Substance: LARONIDASE
     Indication: Product used for unknown indication
     Dosage: 0.58 MG/KG, QW
     Route: 041
     Dates: start: 20100101
  2. LARONIDASE [Suspect]
     Active Substance: LARONIDASE
     Dosage: UNK
     Route: 041
     Dates: start: 20210813

REACTIONS (1)
  - Bone marrow transplant rejection [Recovered/Resolved]
